FAERS Safety Report 5262351-0 (Version None)
Quarter: 2007Q1

REPORT INFORMATION
  Report Type: 
  Country: None (occurrence: None)
  Receive Date: 20070308
  Receipt Date: 20070308
  Transmission Date: 20070707
  Serious: No
  Sender: FDA-Public Use
  Company Number: None

PATIENT
  Age: 14 Year
  Sex: Female
  Weight: 47.6277 kg

DRUGS (1)
  1. ZIPRASIDONE HCL [Suspect]
     Indication: AGITATION
     Dosage: 40MG BID  PO
     Route: 048
     Dates: start: 20060216, end: 20060306

REACTIONS (1)
  - AKATHISIA [None]
